FAERS Safety Report 16828976 (Version 2)
Quarter: 2019Q3

REPORT INFORMATION
  Report Type: Spontaneous
  Country: UA (occurrence: UA)
  Receive Date: 20190919
  Receipt Date: 20190924
  Transmission Date: 20191005
  Serious: Yes (Hospitalization)
  Sender: FDA-Public Use
  Company Number: UA-JNJFOC-20190917785

PATIENT
  Age: 72 Year
  Sex: Male

DRUGS (2)
  1. RIVAROXABAN [Suspect]
     Active Substance: RIVAROXABAN
     Indication: THROMBOSIS PROPHYLAXIS
     Dosage: 2.5 MG, UNK
     Route: 048
     Dates: start: 20190702, end: 20190903
  2. ASPRIN [Suspect]
     Active Substance: ASPIRIN
     Indication: ARTERIAL THROMBOSIS
     Dosage: UNK
     Route: 065
     Dates: start: 20190702, end: 20190903

REACTIONS (1)
  - Peripheral ischaemia [Unknown]

NARRATIVE: CASE EVENT DATE: 20190911
